FAERS Safety Report 7386294-1 (Version None)
Quarter: 2011Q1

REPORT INFORMATION
  Report Type: 
  Country: None (occurrence: None)
  Receive Date: 20110331
  Receipt Date: 20110317
  Transmission Date: 20110831
  Serious: Yes (Other)
  Sender: FDA-Public Use
  Company Number: PHHY2011US22217

PATIENT
  Sex: Female

DRUGS (2)
  1. CYMBALTA [Concomitant]
     Dosage: 120 MG, QD
  2. GILENYA [Suspect]
     Dosage: 0.5 MG, QD
     Route: 048

REACTIONS (1)
  - EAR INFECTION [None]
